FAERS Safety Report 19718511 (Version 1)
Quarter: 2021Q3

REPORT INFORMATION
  Report Type: Other
  Country: US (occurrence: US)
  Receive Date: 20210818
  Receipt Date: 20210818
  Transmission Date: 20211014
  Serious: Yes (Other)
  Sender: FDA-Public Use
  Company Number: US-ROCHE-2127663

PATIENT
  Age: 60 Year
  Sex: Female
  Weight: 118.04 kg

DRUGS (20)
  1. BENADRYL [Concomitant]
     Active Substance: DIPHENHYDRAMINE HYDROCHLORIDE
     Dosage: ONGOING UNKNOWN
  2. VITAMIN D2 [Concomitant]
     Active Substance: ERGOCALCIFEROL
  3. METFORMIN [Concomitant]
     Active Substance: METFORMIN HYDROCHLORIDE
  4. ZOFRAN [Concomitant]
     Active Substance: ONDANSETRON HYDROCHLORIDE
     Route: 048
  5. DICYCLOMINE [Concomitant]
     Active Substance: DICYCLOMINE HYDROCHLORIDE
     Route: 048
  6. LYRICA [Concomitant]
     Active Substance: PREGABALIN
  7. INSULIN DEGLUDEC [Concomitant]
     Active Substance: INSULIN DEGLUDEC
  8. KEPPRA [Concomitant]
     Active Substance: LEVETIRACETAM
  9. OMEPRAZOLE. [Concomitant]
     Active Substance: OMEPRAZOLE
     Route: 048
  10. NOVOLOG [Concomitant]
     Active Substance: INSULIN ASPART
  11. TIZANIDINE. [Concomitant]
     Active Substance: TIZANIDINE
  12. ALBUTEROL. [Concomitant]
     Active Substance: ALBUTEROL
  13. OCREVUS [Suspect]
     Active Substance: OCRELIZUMAB
     Indication: RELAPSING-REMITTING MULTIPLE SCLEROSIS
     Dosage: DATE OF INFUSION WAS 07/MAY/2018?DATE OF TREATMENT: 31/JUL/2019, 31/DEC/2019, 04/JUN/2020, 12/NOV/20
     Route: 042
     Dates: start: 2019
  14. BUPRENORPHINE. [Concomitant]
     Active Substance: BUPRENORPHINE
  15. OCREVUS [Suspect]
     Active Substance: OCRELIZUMAB
     Indication: PRIMARY PROGRESSIVE MULTIPLE SCLEROSIS
     Dosage: ONGOING YES
     Route: 042
     Dates: start: 20210524
  16. LISINOPRIL. [Concomitant]
     Active Substance: LISINOPRIL
  17. FLUOXETINE [Concomitant]
     Active Substance: FLUOXETINE HYDROCHLORIDE
  18. ASPIRIN. [Concomitant]
     Active Substance: ASPIRIN
  19. ATORVASTATIN [Concomitant]
     Active Substance: ATORVASTATIN
  20. NITROGLYCERIN. [Concomitant]
     Active Substance: NITROGLYCERIN

REACTIONS (8)
  - Tremor [Recovered/Resolved]
  - Diarrhoea [Recovered/Resolved]
  - Fatigue [Recovering/Resolving]
  - COVID-19 pneumonia [Recovering/Resolving]
  - Vomiting [Recovered/Resolved]
  - Anaemia [Recovering/Resolving]
  - Off label use [Unknown]
  - Nausea [Not Recovered/Not Resolved]

NARRATIVE: CASE EVENT DATE: 2019
